FAERS Safety Report 7496176-2 (Version None)
Quarter: 2011Q2

REPORT INFORMATION
  Report Type: 
  Country: None (occurrence: None)
  Receive Date: 20110523
  Receipt Date: 20110510
  Transmission Date: 20111010
  Serious: No
  Sender: FDA-Public Use
  Company Number: PHHY2011VE41328

PATIENT
  Sex: Male

DRUGS (2)
  1. TASIGNA [Suspect]
     Dosage: 800 MG DAILY
  2. TASIGNA [Suspect]
     Dosage: 1600 MG DAILY

REACTIONS (1)
  - OVERDOSE [None]
